FAERS Safety Report 9897766 (Version 1)
Quarter: 2014Q1

REPORT INFORMATION
  Report Type: Spontaneous
  Country: FR (occurrence: FR)
  Receive Date: 20140214
  Receipt Date: 20140214
  Transmission Date: 20141002
  Serious: Yes (Death, Life-Threatening, Hospitalization)
  Sender: FDA-Public Use
  Company Number: FR-SA-2014SA014325

PATIENT
  Age: 79 Year
  Sex: Male

DRUGS (5)
  1. KARDEGIC [Suspect]
     Indication: PRODUCT USED FOR UNKNOWN INDICATION
     Route: 048
     Dates: end: 20131210
  2. PLAVIX [Interacting]
     Indication: PRODUCT USED FOR UNKNOWN INDICATION
     Route: 048
     Dates: end: 20131210
  3. PREVISCAN [Interacting]
     Indication: PRODUCT USED FOR UNKNOWN INDICATION
     Route: 048
     Dates: end: 20131210
  4. AMLOR [Concomitant]
  5. TEGRETOL [Concomitant]

REACTIONS (4)
  - Haematemesis [Fatal]
  - Drug interaction [Unknown]
  - International normalised ratio increased [Recovering/Resolving]
  - Anaemia [Recovering/Resolving]
